FAERS Safety Report 12106121 (Version 2)
Quarter: 2016Q2

REPORT INFORMATION
  Report Type: Spontaneous
  Country: US (occurrence: US)
  Receive Date: 20160223
  Receipt Date: 20160524
  Transmission Date: 20160815
  Serious: Yes (Other)
  Sender: FDA-Public Use
  Company Number: ALCN2016US001426

PATIENT
  Age: 82 Year
  Sex: Male

DRUGS (5)
  1. BSS [Suspect]
     Active Substance: CALCIUM CHLORIDE\MAGNESIUM CHLORIDE\POTASSIUM CHLORIDE\SODIUM ACETATE\SODIUM CHLORIDE\SODIUM CITRATE
     Indication: CATARACT OPERATION
     Dosage: UNK
     Route: 047
     Dates: start: 20160126, end: 20160126
  2. PROLENSA [Concomitant]
     Active Substance: BROMFENAC SODIUM
     Indication: PRODUCT USED FOR UNKNOWN INDICATION
     Route: 065
  3. PREDNISOLONE ACETATE. [Suspect]
     Active Substance: PREDNISOLONE ACETATE
     Indication: PRODUCT USED FOR UNKNOWN INDICATION
     Route: 047
  4. SIMVASTIN [Concomitant]
     Active Substance: SIMVASTATIN
     Indication: PRODUCT USED FOR UNKNOWN INDICATION
     Route: 065
  5. LISINOPRIL. [Concomitant]
     Active Substance: LISINOPRIL
     Indication: PRODUCT USED FOR UNKNOWN INDICATION
     Dosage: UNK
     Route: 065

REACTIONS (2)
  - Anterior chamber fibrin [Unknown]
  - Toxic anterior segment syndrome [Unknown]

NARRATIVE: CASE EVENT DATE: 20160127
